FAERS Safety Report 21478410 (Version 1)
Quarter: 2022Q4

REPORT INFORMATION
  Report Type: Report from Study
  Country: US (occurrence: US)
  Receive Date: 20221019
  Receipt Date: 20221019
  Transmission Date: 20230113
  Serious: No
  Sender: FDA-Public Use
  Company Number: US-BIOVITRUM-2022US11705

PATIENT

DRUGS (4)
  1. SYNAGIS [Suspect]
     Active Substance: PALIVIZUMAB
     Indication: Antiviral prophylaxis
  2. FERROUS SULFATE [Concomitant]
     Active Substance: FERROUS SULFATE
  3. HEMANGEOL [Concomitant]
     Active Substance: PROPRANOLOL HYDROCHLORIDE
  4. VITAMIN D3 [Concomitant]
     Active Substance: CHOLECALCIFEROL

REACTIONS (3)
  - Pyrexia [Unknown]
  - Unevaluable event [Unknown]
  - Drug effect less than expected [Unknown]
